FAERS Safety Report 9320591 (Version 2)
Quarter: 2013Q2

REPORT INFORMATION
  Report Type: Report from Study
  Country: JP (occurrence: JP)
  Receive Date: 20130531
  Receipt Date: 20130628
  Transmission Date: 20140414
  Serious: Yes (Other)
  Sender: FDA-Public Use
  Company Number: JP-ROCHE-1213111

PATIENT
  Age: 48 Year
  Sex: Male
  Weight: 67 kg

DRUGS (13)
  1. PEG-INTERFERON ALFA 2A [Suspect]
     Indication: HEPATIC CIRRHOSIS
     Route: 058
     Dates: start: 20111129, end: 20111205
  2. PEG-INTERFERON ALFA 2A [Suspect]
     Indication: HEPATIC CIRRHOSIS
     Route: 058
     Dates: start: 20111206, end: 20120116
  3. PEG-INTERFERON ALFA 2A [Suspect]
     Indication: HEPATIC CIRRHOSIS
     Route: 058
     Dates: start: 20120117
  4. PEG-INTERFERON ALFA 2A [Suspect]
     Indication: HEPATIC CIRRHOSIS
     Route: 058
     Dates: start: 20120522, end: 20120522
  5. PEG-INTERFERON ALFA 2A [Suspect]
     Indication: HEPATIC CIRRHOSIS
     Route: 058
     Dates: start: 20120530
  6. RIBAVIRIN [Suspect]
     Indication: HEPATIC CIRRHOSIS
     Route: 048
     Dates: start: 20111129, end: 20120416
  7. RIBAVIRIN [Suspect]
     Indication: HEPATIC CIRRHOSIS
     Route: 048
     Dates: start: 20120417
  8. LIVACT [Concomitant]
     Indication: HEPATIC CIRRHOSIS
     Route: 048
  9. SELBEX [Concomitant]
     Route: 048
  10. FASTIC [Concomitant]
     Route: 048
  11. WARFARIN [Concomitant]
     Route: 048
  12. GASMOTIN [Concomitant]
     Route: 048
  13. OMEPRAL [Concomitant]
     Route: 048

REACTIONS (3)
  - Neutrophil count decreased [Recovered/Resolved]
  - Erythema [Not Recovered/Not Resolved]
  - Anaemia [Recovered/Resolved]
